FAERS Safety Report 20982567 (Version 6)
Quarter: 2023Q2

REPORT INFORMATION
  Report Type: Report from Study
  Country: US (occurrence: US)
  Receive Date: 20220620
  Receipt Date: 20230523
  Transmission Date: 20230722
  Serious: Yes (Hospitalization)
  Sender: FDA-Public Use
  Company Number: US-TAKEDA-2022TUS039713

PATIENT
  Sex: Male
  Weight: 17 kg

DRUGS (39)
  1. MARIBAVIR [Suspect]
     Active Substance: MARIBAVIR
     Indication: Cytomegalovirus infection
     Dosage: 200 MILLIGRAM, BID
     Route: 048
     Dates: start: 20220621, end: 20220926
  2. MARIBAVIR [Suspect]
     Active Substance: MARIBAVIR
     Dosage: 200 MILLIGRAM, BID
     Route: 048
     Dates: start: 20220622
  3. PROMACTA [Suspect]
     Active Substance: ELTROMBOPAG OLAMINE
     Indication: Product used for unknown indication
     Dosage: 1 DOSAGE FORM, QD
     Route: 048
     Dates: start: 20230315
  4. VFEND [Concomitant]
     Active Substance: VORICONAZOLE
     Dosage: 3.2 MILLILITER, BID
     Route: 048
  5. LEVAQUIN [Concomitant]
     Active Substance: LEVOFLOXACIN
     Dosage: 6.3 MILLILITER, QD
     Route: 048
  6. ZOVIRAX [Concomitant]
     Active Substance: ACYCLOVIR
     Dosage: 10 MILLILITER, BID
     Route: 048
  7. KEPPRA [Concomitant]
     Active Substance: LEVETIRACETAM
     Indication: Seizure
     Dosage: 1.6 MILLILITER, BID
     Route: 048
  8. URSODIOL [Concomitant]
     Active Substance: URSODIOL
     Dosage: 3.8 MILLILITER, BID
     Route: 048
  9. URSODIOL [Concomitant]
     Active Substance: URSODIOL
     Dosage: 3.8 MILLILITER, BID
     Route: 048
     Dates: start: 20230322
  10. CHOLECALCIFEROL [Concomitant]
     Active Substance: CHOLECALCIFEROL
     Indication: Vitamin D deficiency
     Dosage: 0.2 MILLILITER, QD
     Route: 048
  11. CHOLECALCIFEROL [Concomitant]
     Active Substance: CHOLECALCIFEROL
     Indication: Bone disorder
  12. CYPROHEPTADINE HYDROCHLORIDE [Concomitant]
     Active Substance: CYPROHEPTADINE HYDROCHLORIDE
     Dosage: 1.96 MILLIGRAM, BID
     Route: 048
  13. CYPROHEPTADINE HYDROCHLORIDE [Concomitant]
     Active Substance: CYPROHEPTADINE HYDROCHLORIDE
     Dosage: 4.9 MILLILITER
     Route: 048
     Dates: start: 20221211
  14. OMEGA 3 [Concomitant]
     Active Substance: CAPSAICIN
     Dosage: 3.2 MILLILITER, QD
     Route: 048
  15. OMEGA 3 [Concomitant]
     Active Substance: CAPSAICIN
     Dosage: 3.2 MILLILITER, QD
     Route: 048
     Dates: start: 20220705
  16. OMEPRAZOLE [Concomitant]
     Active Substance: OMEPRAZOLE
     Dosage: 5 MILLILITER, QD
     Route: 048
  17. OMEPRAZOLE [Concomitant]
     Active Substance: OMEPRAZOLE
     Dosage: 5 MILLILITER, QD
     Route: 048
     Dates: start: 20221211
  18. ZOFRAN [Concomitant]
     Active Substance: ONDANSETRON HYDROCHLORIDE
     Indication: Nausea
     Dosage: 2 MILLIGRAM, Q8HR
     Route: 048
  19. ZOFRAN [Concomitant]
     Active Substance: ONDANSETRON HYDROCHLORIDE
     Indication: Vomiting
     Dosage: UNK UNK, Q8HR
     Route: 048
     Dates: start: 20230330
  20. MIDAZOLAM [Concomitant]
     Active Substance: MIDAZOLAM
     Indication: Seizure
     Dosage: 2.8 MILLIGRAM, QD
     Route: 045
  21. MIDAZOLAM [Concomitant]
     Active Substance: MIDAZOLAM
     Dosage: 0.56 MILLILITER
     Route: 045
     Dates: start: 20220310, end: 20230506
  22. BENADRYL [Concomitant]
     Active Substance: DIPHENHYDRAMINE HYDROCHLORIDE
     Indication: Nausea
     Dosage: 6 MILLILITER, Q6HR
     Route: 048
  23. BENADRYL [Concomitant]
     Active Substance: DIPHENHYDRAMINE HYDROCHLORIDE
     Indication: Vomiting
  24. PEDIACARE GAS RELIEF [Concomitant]
     Dosage: 0.3 MILLILITER, Q6HR
     Route: 048
  25. PEDIACARE GAS RELIEF [Concomitant]
     Dosage: 0.3 MILLILITER, Q6HR
     Route: 048
     Dates: start: 20221211
  26. CARBOXYMETHYLCELLULOSE SODIUM [Concomitant]
     Active Substance: CARBOXYMETHYLCELLULOSE SODIUM
     Indication: Dry eye
     Dosage: 1 GTT DROPS, Q6HR
     Route: 047
  27. PREDNISONE ACETATE [Concomitant]
     Active Substance: PREDNISONE ACETATE
     Dosage: UNK
  28. ACETAMINOPHEN [Concomitant]
     Active Substance: ACETAMINOPHEN
     Dosage: UNK, Q4HR
     Route: 048
     Dates: start: 20221211
  29. CEFEPIME [Concomitant]
     Active Substance: CEFEPIME HYDROCHLORIDE
     Dosage: UNK
  30. ACYCLOVIR [Concomitant]
     Active Substance: ACYCLOVIR
     Dosage: 10 MILLILITER, BID
     Route: 048
     Dates: start: 20230309
  31. LEVETIRACETAM [Concomitant]
     Active Substance: LEVETIRACETAM
     Dosage: 1.6 MILLILITER, BID
     Route: 048
     Dates: start: 20220614
  32. VORICONAZOLE [Concomitant]
     Active Substance: VORICONAZOLE
     Dosage: 3.2 MILLILITER, BID
     Route: 048
  33. VORICONAZOLE [Concomitant]
     Active Substance: VORICONAZOLE
     Dosage: 3.2 MILLILITER, BID
     Route: 048
     Dates: start: 20230314
  34. VANCOMYCIN [Concomitant]
     Active Substance: VANCOMYCIN
     Dosage: UNK
  35. DIPHENHYDRAMINE [Concomitant]
     Active Substance: DIPHENHYDRAMINE
     Indication: Nausea
     Dosage: 6 MILLILITER, Q6HR
     Route: 048
     Dates: start: 20221211
  36. DIPHENHYDRAMINE [Concomitant]
     Active Substance: DIPHENHYDRAMINE
     Indication: Vomiting
  37. FILGRASTIM [Concomitant]
     Active Substance: FILGRASTIM
     Dosage: 0.26 MILLILITER, QD
     Route: 058
     Dates: start: 20230309
  38. LEUCOVORIN CALCIUM [Concomitant]
     Active Substance: LEUCOVORIN CALCIUM
     Dosage: UNK UNK, Q6HR
     Route: 048
     Dates: start: 20230309
  39. LEUCOVORIN CALCIUM [Concomitant]
     Active Substance: LEUCOVORIN CALCIUM
     Dosage: UNK UNK, Q6HR
     Route: 048
     Dates: start: 20230412, end: 20230413

REACTIONS (6)
  - Hospitalisation [Unknown]
  - Hyperphagia [Unknown]
  - Nasal congestion [Unknown]
  - Insurance issue [Unknown]
  - Inappropriate schedule of product administration [Unknown]
  - Product use issue [Unknown]
